FAERS Safety Report 5183393-X (Version None)
Quarter: 2006Q4

REPORT INFORMATION
  Report Type: 
  Country: None (occurrence: None)
  Receive Date: 20061220
  Receipt Date: 20060914
  Transmission Date: 20070319
  Serious: No
  Sender: FDA-Public Use
  Company Number: IT-AVENTIS-200621758GDDC

PATIENT
  Age: 40 Year
  Sex: Female

DRUGS (3)
  1. LANTUS [Suspect]
     Indication: DIABETES MELLITUS INSULIN-DEPENDENT
     Route: 058
     Dates: start: 20040101, end: 20050101
  2. INSULIN ASPART [Concomitant]
     Dosage: DOSE: 2 IU AT LUNCH
     Route: 058
  3. HUMULIN 30/70 MIX [Concomitant]
     Indication: DIABETES MELLITUS
     Dosage: DOSE: 4/6

REACTIONS (2)
  - CYTOMEGALOVIRUS INFECTION [None]
  - GRANULOMA [None]
